FAERS Safety Report 9226631 (Version 1)
Quarter: 2013Q2

REPORT INFORMATION
  Report Type: Spontaneous
  Country: SG (occurrence: SG)
  Receive Date: 20130412
  Receipt Date: 20130412
  Transmission Date: 20140414
  Serious: Yes (Other)
  Sender: FDA-Public Use
  Company Number: SG-PFIZER INC-2013110368

PATIENT
  Age: 93 Year
  Sex: Male

DRUGS (1)
  1. DETRUSITOL SR [Suspect]
     Route: 048

REACTIONS (1)
  - Rash [Recovered/Resolved]
